FAERS Safety Report 6618170-3 (Version None)
Quarter: 2010Q1

REPORT INFORMATION
  Report Type: 
  Country: None (occurrence: None)
  Receive Date: 20100308
  Receipt Date: 20100301
  Transmission Date: 20100710
  Serious: Yes (Hospitalization)
  Sender: FDA-Public Use
  Company Number: US-SANOFI-AVENTIS-2010SA012097

PATIENT
  Age: 77 Year
  Sex: Male
  Weight: 95.25 kg

DRUGS (5)
  1. DOCETAXEL [Suspect]
     Indication: PROSTATE CANCER
     Route: 042
     Dates: start: 20091222, end: 20091222
  2. DOCETAXEL [Suspect]
     Route: 042
     Dates: start: 20100225, end: 20100225
  3. BLINDED THERAPY [Suspect]
     Indication: PROSTATE CANCER
     Route: 048
     Dates: start: 20091222, end: 20100226
  4. PREDNISONE [Suspect]
     Indication: PROSTATE CANCER
     Route: 048
     Dates: start: 20091222, end: 20100226
  5. DEXAMETHASONE [Suspect]
     Dates: start: 20091222, end: 20100225

REACTIONS (3)
  - MYOCARDIAL ISCHAEMIA [None]
  - MYOCARDITIS [None]
  - TROPONIN [None]
